FAERS Safety Report 16757044 (Version 1)
Quarter: 2019Q3

REPORT INFORMATION
  Report Type: Report from Study
  Country: US (occurrence: US)
  Receive Date: 20190829
  Receipt Date: 20190829
  Transmission Date: 20191005
  Serious: Yes (Other)
  Sender: FDA-Public Use
  Company Number: US-JNJFOC-20190828738

PATIENT

DRUGS (4)
  1. TALIMOGENE LAHERPAREPVEC [Suspect]
     Active Substance: TALIMOGENE LAHERPAREPVEC
     Indication: TRIPLE NEGATIVE BREAST CANCER
     Dosage: DL1=10 PFU X 5 DOSES, DL2=10 PFU 1 DOSE THEN 10 PFU X 4 DOSES] Q2WEEK
     Route: 065
  2. DOXORUBICIN HYDROCHLORIDE. [Suspect]
     Active Substance: DOXORUBICIN HYDROCHLORIDE
     Indication: TRIPLE NEGATIVE BREAST CANCER
     Route: 042
  3. PACLITAXEL. [Suspect]
     Active Substance: PACLITAXEL
     Indication: TRIPLE NEGATIVE BREAST CANCER
     Dosage: 80 MG/M
     Route: 042
  4. CYCLOPHOSPHAMIDE. [Suspect]
     Active Substance: CYCLOPHOSPHAMIDE
     Indication: TRIPLE NEGATIVE BREAST CANCER
     Route: 042

REACTIONS (10)
  - Fatigue [Unknown]
  - Embolism [Unknown]
  - Neuropathy peripheral [Unknown]
  - Product use issue [Unknown]
  - Bradycardia [Unknown]
  - Anaemia [Unknown]
  - Nausea [Unknown]
  - Lymphopenia [Unknown]
  - Infusion related reaction [Unknown]
  - Off label use [Unknown]
